FAERS Safety Report 24672778 (Version 1)
Quarter: 2024Q4

REPORT INFORMATION
  Report Type: Report from Study
  Country: CA (occurrence: CA)
  Receive Date: 20241128
  Receipt Date: 20241128
  Transmission Date: 20250115
  Serious: Yes (Death)
  Sender: BIOGEN
  Company Number: CA-BIOGEN-2024BI01291779

PATIENT
  Age: 41 Year
  Sex: Female

DRUGS (1)
  1. TYSABRI [Suspect]
     Active Substance: NATALIZUMAB
     Indication: Multiple sclerosis
     Route: 050
     Dates: start: 20160822, end: 20241012

REACTIONS (2)
  - Cardiac arrest [Fatal]
  - Pulmonary thrombosis [Fatal]

NARRATIVE: CASE EVENT DATE: 20241122
